FAERS Safety Report 25301876 (Version 1)
Quarter: 2025Q2

REPORT INFORMATION
  Report Type: Spontaneous
  Country: US (occurrence: None)
  Receive Date: 20250512
  Receipt Date: 20250512
  Transmission Date: 20250717
  Serious: Yes (Other)
  Sender: FDA-CTU
  Company Number: None

PATIENT
  Age: 65 Year
  Sex: Female

DRUGS (2)
  1. KEYTRUDA [Suspect]
     Active Substance: PEMBROLIZUMAB
     Indication: Endometrial cancer
     Route: 042
  2. Pembrolizumab 25 mg/mL [Concomitant]
     Dates: start: 20240712

REACTIONS (2)
  - Blood glucose increased [None]
  - Therapy interrupted [None]

NARRATIVE: CASE EVENT DATE: 20250228
